FAERS Safety Report 8541693-7 (Version None)
Quarter: 2012Q3

REPORT INFORMATION
  Report Type: 
  Country: None (occurrence: None)
  Receive Date: 20120726
  Receipt Date: 20120720
  Transmission Date: 20120928
  Serious: Yes (Other)
  Sender: FDA-Public Use
  Company Number: PHHY2012FR063190

PATIENT
  Age: 11 Year

DRUGS (2)
  1. MINOCYCLINE HCL [Suspect]
     Indication: CYSTIC FIBROSIS
     Dosage: 100 MG, PER DAY
  2. MINOCYCLINE HCL [Suspect]

REACTIONS (4)
  - PYREXIA [None]
  - EOSINOPHILIA [None]
  - CONGESTIVE CARDIOMYOPATHY [None]
  - PLEURAL EFFUSION [None]
